FAERS Safety Report 8242950 (Version 2)
Quarter: 2017Q1

REPORT INFORMATION
  Report Type: Report from Study
  Country: JP (occurrence: JP)
  Receive Date: 20111114
  Receipt Date: 20170301
  Transmission Date: 20170429
  Serious: Yes (Death)
  Sender: FDA-Public Use
  Company Number: JP-ROCHE-1010869

PATIENT

DRUGS (2)
  1. ALTEPLASE [Suspect]
     Active Substance: ALTEPLASE
     Indication: ISCHAEMIC STROKE
     Dosage: 10 % LOADING BOLUS INJECTION FOR 1 MINUTE FOLLOWED BY CONTINUOUS INFUSINO FOR 60 MINUTES (1.5% OF 0.
     Route: 042
  2. ALTEPLASE [Suspect]
     Active Substance: ALTEPLASE
     Indication: CEREBRAL ARTERY OCCLUSION

REACTIONS (1)
  - Death [Fatal]
